FAERS Safety Report 10572553 (Version 1)
Quarter: 2014Q4

REPORT INFORMATION
  Report Type: Spontaneous
  Country: FR (occurrence: FR)
  Receive Date: 20141110
  Receipt Date: 20141110
  Transmission Date: 20150529
  Serious: Yes (Death, Life-Threatening, Hospitalization)
  Sender: FDA-Public Use
  Company Number: FR-BRISTOL-MYERS SQUIBB COMPANY-21550348

PATIENT
  Age: 54 Year
  Sex: Male

DRUGS (13)
  1. CALCIPARINE [Suspect]
     Active Substance: HEPARIN CALCIUM
     Dosage: 7500 IU/0.3ML
     Route: 058
  2. OXYNORM [Concomitant]
     Active Substance: OXYCODONE HYDROCHLORIDE
  3. INEXIUM [Concomitant]
     Active Substance: ESOMEPRAZOLE
  4. LASILIX [Concomitant]
     Active Substance: FUROSEMIDE
  5. CARDENSIEL [Concomitant]
     Active Substance: BISOPROLOL FUMARATE
  6. OXYCONTIN [Concomitant]
     Active Substance: OXYCODONE HYDROCHLORIDE
  7. TOPALGIC [Concomitant]
     Active Substance: TRAMADOL
  8. MEROPENEM. [Concomitant]
     Active Substance: MEROPENEM
  9. TRIATEC [Concomitant]
     Active Substance: RAMIPRIL
  10. DAFALGAN CODEINE [Concomitant]
     Active Substance: ACETAMINOPHEN\CODEINE PHOSPHATE
  11. COUMADIN [Suspect]
     Active Substance: WARFARIN SODIUM
     Route: 048
  12. PARACETAMOL [Concomitant]
     Active Substance: ACETAMINOPHEN
  13. LAROXYL [Concomitant]
     Active Substance: AMITRIPTYLINE

REACTIONS (3)
  - Subdural haematoma [Fatal]
  - Somnolence [Fatal]
  - Haematemesis [Fatal]

NARRATIVE: CASE EVENT DATE: 20140705
